FAERS Safety Report 23934489 (Version 1)
Quarter: 2024Q2

REPORT INFORMATION
  Report Type: Spontaneous
  Country: US (occurrence: US)
  Receive Date: 20240603
  Receipt Date: 20240603
  Transmission Date: 20240716
  Serious: Yes (Other)
  Sender: FDA-Public Use
  Company Number: US-PFIZER INC-202400180241

PATIENT
  Age: 64 Year
  Sex: Female
  Weight: 93.44 kg

DRUGS (1)
  1. PAXLOVID [Suspect]
     Active Substance: NIRMATRELVIR\RITONAVIR
     Indication: COVID-19 treatment
     Dosage: [NIRMATRELVIR 300 MG]/[RITONAVIR 100 MG]; 2X/DAY

REACTIONS (9)
  - Anaphylactic reaction [Unknown]
  - Hypersensitivity [Unknown]
  - Pharyngeal swelling [Unknown]
  - Oral mucosal blistering [Unknown]
  - Throat tightness [Unknown]
  - Pyrexia [Unknown]
  - Cough [Unknown]
  - Dyspnoea [Unknown]
  - Diarrhoea [Unknown]
